FAERS Safety Report 8295736-9 (Version None)
Quarter: 2012Q2

REPORT INFORMATION
  Report Type: 
  Country: None (occurrence: None)
  Receive Date: 20120418
  Receipt Date: 20120413
  Transmission Date: 20120825
  Serious: No
  Sender: FDA-Public Use
  Company Number: US-PFIZER INC-2012092868

PATIENT
  Sex: Female

DRUGS (1)
  1. XALKORI [Suspect]
     Indication: LUNG NEOPLASM MALIGNANT
     Dosage: UNK, 2X/DAY
     Route: 048
     Dates: start: 20120328, end: 20120406

REACTIONS (1)
  - BLOOD CREATININE INCREASED [None]
